FAERS Safety Report 4323993-X (Version None)
Quarter: 2004Q1

REPORT INFORMATION
  Report Type: 
  Country: None (occurrence: None)
  Receive Date: 20040326
  Receipt Date: 20031204
  Transmission Date: 20041129
  Serious: No
  Sender: FDA-Public Use
  Company Number: US-GLAXOSMITHKLINE-A0442017A

PATIENT
  Age: 6 Year
  Sex: Female

DRUGS (1)
  1. ADVAIR DISKUS 100/50 [Suspect]
     Route: 055
     Dates: start: 20031101

REACTIONS (4)
  - BLISTER [None]
  - RASH [None]
  - SOMNOLENCE [None]
  - URTICARIA [None]
